FAERS Safety Report 8432293-8 (Version None)
Quarter: 2012Q2

REPORT INFORMATION
  Report Type: 
  Country: None (occurrence: None)
  Receive Date: 20120613
  Receipt Date: 20120608
  Transmission Date: 20120825
  Serious: Yes (Other)
  Sender: FDA-Public Use
  Company Number: PHEH2012US011603

PATIENT
  Sex: Female

DRUGS (8)
  1. CLONAZEPAM [Concomitant]
     Indication: NERVE INJURY
     Dosage: 1 MG, FOUR A DAY
  2. NIACIN [Concomitant]
     Indication: BLOOD CHOLESTEROL INCREASED
     Dosage: 1500 MG, QD
     Route: 048
  3. SYNTHROID [Concomitant]
     Indication: THYROID DISORDER
     Dosage: 100 UG, QD
     Route: 048
  4. RECLAST [Suspect]
     Indication: OSTEOPOROSIS
     Dosage: UNK UKN, UNK
     Route: 042
     Dates: start: 20110601
  5. LISINOPRIL [Concomitant]
     Indication: BLOOD PRESSURE INCREASED
     Dosage: 5 MG, QD
     Route: 048
  6. ATENOLOL [Concomitant]
     Indication: CARDIAC DISORDER
     Dosage: 12.5 MG, QD
     Route: 048
  7. BACLOFEN [Concomitant]
     Indication: OESOPHAGEAL SPASM
     Dosage: 10 MG, TID
     Route: 048
  8. DILAUDID [Concomitant]
     Indication: SLEEP DISORDER
     Dosage: 4 MG, ONCE AT NIGHT
     Route: 048

REACTIONS (1)
  - CONVULSION [None]
